FAERS Safety Report 13940949 (Version 1)
Quarter: 2017Q3

REPORT INFORMATION
  Report Type: Spontaneous
  Country: US (occurrence: US)
  Receive Date: 20170906
  Receipt Date: 20170906
  Transmission Date: 20171127
  Serious: Yes (Other)
  Sender: FDA-Public Use
  Company Number: US-3M HEALTH CARE-USEN-A6DSM9

PATIENT
  Sex: Male

DRUGS (2)
  1. 3M SKIN AND NASAL ANTISEPTIC [Suspect]
     Active Substance: POVIDONE-IODINE
     Indication: PREOPERATIVE CARE
     Dosage: 4 ML MILLILITRE(S), SINGLE USE
     Route: 061
     Dates: start: 20160120
  2. CHLORHEXIDINE [Concomitant]
     Active Substance: CHLORHEXIDINE
     Dosage: SKIN WIPES
     Dates: start: 20160120

REACTIONS (2)
  - Pruritus [Recovered/Resolved]
  - Rash [Recovered/Resolved]

NARRATIVE: CASE EVENT DATE: 20160120
